FAERS Safety Report 8043658-0 (Version None)
Quarter: 2012Q1

REPORT INFORMATION
  Report Type: 
  Country: None (occurrence: None)
  Receive Date: 20120112
  Receipt Date: 20120103
  Transmission Date: 20120608
  Serious: Yes (Other)
  Sender: FDA-Public Use
  Company Number: US-ASTRAZENECA-2012SE00599

PATIENT
  Age: 57 Year
  Sex: Female

DRUGS (1)
  1. SEROQUEL XR [Suspect]
     Indication: DEPRESSION
     Dosage: TOTAL DAILY DOSE OF 150 MG.
     Route: 048

REACTIONS (1)
  - MYOCARDIAL INFARCTION [None]
